FAERS Safety Report 17593548 (Version 4)
Quarter: 2021Q1

REPORT INFORMATION
  Report Type: Report from Study
  Country: GB (occurrence: GB)
  Receive Date: 20200327
  Receipt Date: 20210216
  Transmission Date: 20210419
  Serious: Yes (Hospitalization, Disabling)
  Sender: FDA-Public Use
  Company Number: GB-MYLANLABS-2020M1032527

PATIENT
  Age: 47 Year
  Sex: Female

DRUGS (44)
  1. TRASTUZUMAB. [Suspect]
     Active Substance: TRASTUZUMAB
     Dosage: 240 MILLIGRAM, Q3W
     Route: 042
     Dates: start: 20161201, end: 20170302
  2. PERTUZUMAB. [Suspect]
     Active Substance: PERTUZUMAB
     Indication: BREAST CANCER
     Dosage: 840 MILLIGRAM (LOADING DOSE)
     Route: 042
     Dates: start: 20151023, end: 20151023
  3. DEXAMETHASONE. [Concomitant]
     Active Substance: DEXAMETHASONE
     Dosage: 8 MG, UNK
     Route: 048
     Dates: start: 20170809, end: 20170919
  4. GLYCOPYRRONIUM [Concomitant]
     Active Substance: GLYCOPYRRONIUM
     Indication: PALLIATIVE CARE
     Dosage: 400 MICROGRAM, PRN (400 MICROGRAM (PRN (AS NEEDED)
     Route: 058
     Dates: start: 20170919, end: 20170920
  5. ONDANSETRON [Concomitant]
     Active Substance: ONDANSETRON
     Dosage: 8 MILLIGRAM, QD
     Route: 048
     Dates: start: 20170809, end: 20170812
  6. CLOTRIMAZOLE. [Concomitant]
     Active Substance: CLOTRIMAZOLE
     Dosage: 1 PERCENT (0.33 DAY)
     Route: 061
     Dates: start: 20170918, end: 20170920
  7. CALCICHEW D3 FORTE [Concomitant]
     Active Substance: CALCIUM\CHOLECALCIFEROL
     Indication: HYPOCALCAEMIA
     Dosage: UNK
     Route: 048
     Dates: start: 20151231, end: 20170919
  8. ZOPICLONE ACTAVIS [Concomitant]
     Active Substance: ZOPICLONE
     Dosage: 3.75 MILLIGRAM
     Route: 048
     Dates: start: 20170825, end: 20170919
  9. CHLORPHENAMINE [Concomitant]
     Active Substance: CHLORPHENIRAMINE MALEATE
     Indication: PROPHYLAXIS
     Dosage: 30 MG, QW
     Route: 042
     Dates: start: 20151022, end: 20160222
  10. FILGRASTIM [Concomitant]
     Active Substance: FILGRASTIM
     Dosage: 30 MICROGRAM
     Route: 058
  11. HALOPERIDOL. [Concomitant]
     Active Substance: HALOPERIDOL
     Dosage: 1.5 MILLIGRAM, BID
     Route: 048
     Dates: start: 20170810, end: 20170919
  12. MIGRALEVE                          /01325801/ [Concomitant]
     Active Substance: ACETAMINOPHEN\BUCLIZINE HYDROCHLORIDE\CODEINE
     Dosage: UNK, PRN
     Route: 048
     Dates: start: 2017
  13. TRIMETHOPRIM. [Concomitant]
     Active Substance: TRIMETHOPRIM
     Dosage: 50 MILLIGRAM
     Dates: start: 20170915, end: 20170919
  14. HYDROCORTISONE. [Concomitant]
     Active Substance: HYDROCORTISONE
     Indication: PROPHYLAXIS
     Dosage: 100 MILLIGRAM (0.33 WEEK)
     Route: 042
     Dates: start: 20151022, end: 20160222
  15. MICONAZOLE. [Concomitant]
     Active Substance: MICONAZOLE
     Dosage: 20 MILLIGRAM
     Route: 048
     Dates: start: 20170918, end: 20170920
  16. CHLORAMPHENICOL [Concomitant]
     Active Substance: CHLORAMPHENICOL
     Dosage: 1 PERCENT
     Route: 047
     Dates: start: 20170918, end: 20170920
  17. TRASTUZUMAB. [Suspect]
     Active Substance: TRASTUZUMAB
     Indication: HER2 POSITIVE BREAST CANCER
     Dosage: 400 MILLIGRAM, Q3W (MAINTENANCE DOSE)
     Route: 042
     Dates: start: 20151120, end: 20161104
  18. IRINOTECAN [Suspect]
     Active Substance: IRINOTECAN
     Indication: HER2 POSITIVE BREAST CANCER
     Dosage: 132 MILLIGRAM, QD
     Route: 042
     Dates: start: 20151022, end: 20151022
  19. DEXAMETHASONE. [Concomitant]
     Active Substance: DEXAMETHASONE
     Indication: METASTASES TO CENTRAL NERVOUS SYSTEM
     Dosage: 4 MILLIGRAM, BID (0.5 DAY)
     Route: 048
     Dates: start: 20170809, end: 20170919
  20. DEXAMETHASONE. [Concomitant]
     Active Substance: DEXAMETHASONE
     Dosage: 8 MILLIGRAM,TWICE A DAY FOR 3 DAYS STARTING DAY BEFORE CHEMO
     Route: 048
     Dates: start: 20151210, end: 20160222
  21. MIDAZOLAM. [Concomitant]
     Active Substance: MIDAZOLAM
     Indication: PALLIATIVE CARE
     Dosage: 2.5 MILLIGRAM (PRN (AS NEEDED))
     Route: 058
     Dates: start: 20170918, end: 20170920
  22. MORPHINE SULPHATE [Concomitant]
     Active Substance: MORPHINE SULFATE
     Indication: PALLIATIVE CARE
     Dosage: 2.5 MILLIGRAM (PRN (AS NEEDED))
     Route: 058
     Dates: start: 20170918, end: 20170920
  23. HALOPERIDOL. [Concomitant]
     Active Substance: HALOPERIDOL
     Indication: PALLIATIVE CARE
     Dosage: 1.5 MILLIGRAM PRN (AS NEEDED))
     Route: 058
     Dates: start: 20170919, end: 20170920
  24. DOCETAXEL. [Suspect]
     Active Substance: DOCETAXEL
     Indication: BREAST CANCER METASTATIC
     Dosage: 132 MILLIGRAM (LOADING DOSE)
     Route: 042
     Dates: start: 20151022, end: 20151022
  25. PERTUZUMAB. [Suspect]
     Active Substance: PERTUZUMAB
     Indication: HER2 POSITIVE BREAST CANCER
     Dosage: 420 MILLIGRAM, Q3W (MAINTENANCE DOSE)
     Route: 042
     Dates: start: 20151120, end: 20161104
  26. DEXAMETHASONE. [Concomitant]
     Active Substance: DEXAMETHASONE
     Dosage: 2 MILLIGRAM, QD
     Route: 048
     Dates: start: 20170726, end: 20170803
  27. DEXAMETHASONE. [Concomitant]
     Active Substance: DEXAMETHASONE
     Dosage: 16 MG, UNK
     Route: 048
     Dates: start: 20170803, end: 20170809
  28. FILGRASTIM [Concomitant]
     Active Substance: FILGRASTIM
     Indication: PROPHYLAXIS
     Dosage: QD FOR SEVEN DAYS FROM DAY 4 OF CYCLE
     Route: 058
     Dates: start: 20151210, end: 20160305
  29. DOMPERIDONE [Concomitant]
     Active Substance: DOMPERIDONE
     Dosage: 10 MILLIGRAM, QD
     Route: 048
     Dates: start: 20170810, end: 20170919
  30. DOCETAXEL. [Suspect]
     Active Substance: DOCETAXEL
     Dosage: 108 MILLIGRAM, Q3W (MAINTENANCE DOSE)
     Route: 042
     Dates: start: 20151120, end: 20160222
  31. LETROZOLE. [Suspect]
     Active Substance: LETROZOLE
     Indication: HER2 POSITIVE BREAST CANCER
     Dosage: 2.5 MILLIGRAM, QD
     Route: 048
     Dates: start: 20160308, end: 20161123
  32. DEXAMETHASONE. [Concomitant]
     Active Substance: DEXAMETHASONE
     Indication: PROPHYLAXIS
     Dosage: 8 MILLIGRAM, BID (0.5 DAY)
     Route: 048
     Dates: start: 20170803, end: 20170809
  33. FILGRASTIM [Concomitant]
     Active Substance: FILGRASTIM
     Dosage: 300 MICROGRAM, QD (INJECTION)
     Route: 058
     Dates: start: 20151120, end: 20151127
  34. CHLORPHENIRAMINE                   /00072501/ [Concomitant]
     Active Substance: CHLORPHENIRAMINE
     Dosage: 30 MILLIGRAM, QW
     Route: 042
     Dates: start: 20151022, end: 20160222
  35. TRASTUZUMAB. [Suspect]
     Active Substance: TRASTUZUMAB
     Dosage: 525 MILLIGRAM (LOADING DOSE)
     Route: 042
     Dates: start: 20151023, end: 20151023
  36. ZOLEDRONIC ACID [Concomitant]
     Active Substance: ZOLEDRONIC ACID
     Indication: PRODUCT USED FOR UNKNOWN INDICATION
     Dosage: 4 MILLIGRAM, MONTHLY
     Route: 042
     Dates: start: 20151022, end: 20170713
  37. CHLORPHENIRAMINE                   /00072501/ [Concomitant]
     Active Substance: CHLORPHENIRAMINE
     Indication: PROPHYLAXIS
     Dosage: 10 MILLIGRAM (0.33 WEEK)
     Route: 042
     Dates: start: 20151022, end: 20160222
  38. MIDAZOLAM. [Concomitant]
     Active Substance: MIDAZOLAM
     Dosage: 2.5 MILLIGRAM, PRN
     Route: 058
  39. NYSTATIN. [Concomitant]
     Active Substance: NYSTATIN
     Dosage: 0.25,, DAY,1000 UNIT
     Route: 048
     Dates: start: 20170904, end: 20170919
  40. TRASTUZUMAB. [Suspect]
     Active Substance: TRASTUZUMAB
     Dosage: 200 MILLIGRAM, Q3W
     Route: 042
     Dates: start: 20170330, end: 20170608
  41. IRINOTECAN [Suspect]
     Active Substance: IRINOTECAN
     Dosage: 108 MILLIGRAM, Q3W
     Route: 042
     Dates: start: 20151120, end: 20160222
  42. LANSOPRAZOLE. [Concomitant]
     Active Substance: LANSOPRAZOLE
     Indication: PROPHYLAXIS
     Dosage: 30 MILLIGRAM, QD
     Route: 048
     Dates: start: 20170728, end: 20170905
  43. DEXAMETHASONE. [Concomitant]
     Active Substance: DEXAMETHASONE
     Indication: DISEASE PROGRESSION
     Dosage: 2 MILLIGRAM, QD
     Route: 048
     Dates: start: 20170726, end: 20170803
  44. HYDROCORTISONE. [Concomitant]
     Active Substance: HYDROCORTISONE
     Dosage: 300 MILLIGRAM, QW
     Route: 042
     Dates: start: 20151022, end: 20160222

REACTIONS (11)
  - Hypocalcaemia [Not Recovered/Not Resolved]
  - Depression [Not Recovered/Not Resolved]
  - Abnormal sensation in eye [Recovered/Resolved]
  - Nasopharyngitis [Recovered/Resolved]
  - Lethargy [Not Recovered/Not Resolved]
  - Hydronephrosis [Recovered/Resolved]
  - Asthenia [Recovered/Resolved]
  - Dyschezia [Not Recovered/Not Resolved]
  - Decreased appetite [Recovered/Resolved]
  - Migraine [Not Recovered/Not Resolved]
  - Oropharyngeal pain [Recovered/Resolved]

NARRATIVE: CASE EVENT DATE: 20151229
